FAERS Safety Report 21094806 (Version 1)
Quarter: 2022Q3

REPORT INFORMATION
  Report Type: Spontaneous
  Country: US (occurrence: None)
  Receive Date: 20220715
  Receipt Date: 20220715
  Transmission Date: 20221027
  Serious: Yes (Life-Threatening, Hospitalization)
  Sender: FDA-Public Use
  Company Number: None

PATIENT
  Age: 61 Year
  Sex: Female
  Weight: 85.05 kg

DRUGS (15)
  1. MOUNJARO [Suspect]
     Active Substance: TIRZEPATIDE
     Indication: Diabetes mellitus
     Dosage: FREQUENCY : WEEKLY;?
     Route: 058
     Dates: start: 20220709
  2. LYRICA [Concomitant]
     Active Substance: PREGABALIN
  3. LORATADINE [Concomitant]
     Active Substance: LORATADINE
  4. NEXIUM [Concomitant]
     Active Substance: ESOMEPRAZOLE MAGNESIUM
  5. FORTAMET [Concomitant]
     Active Substance: METFORMIN HYDROCHLORIDE
  6. TRULICITY [Concomitant]
     Active Substance: DULAGLUTIDE
  7. MOUNJARO [Concomitant]
     Active Substance: TIRZEPATIDE
  8. LOSARTAN POTASSIUM [Concomitant]
     Active Substance: LOSARTAN POTASSIUM
  9. ATORVASTATIN [Concomitant]
     Active Substance: ATORVASTATIN
  10. MELOXICAM [Concomitant]
     Active Substance: MELOXICAM
  11. CYCLOBENZAPRINE [Concomitant]
     Active Substance: CYCLOBENZAPRINE
  12. LUNESTA [Concomitant]
     Active Substance: ESZOPICLONE
  13. OMEGA 3 [Concomitant]
     Active Substance: CAPSAICIN
  14. CALCIUM [Concomitant]
     Active Substance: CALCIUM
  15. VITAMINS [Concomitant]
     Active Substance: VITAMINS

REACTIONS (6)
  - Malaise [None]
  - Bedridden [None]
  - Diarrhoea [None]
  - Vomiting [None]
  - Hypophagia [None]
  - Product quality issue [None]

NARRATIVE: CASE EVENT DATE: 20220711
